FAERS Safety Report 23165875 (Version 1)
Quarter: 2023Q4

REPORT INFORMATION
  Report Type: Spontaneous
  Country: US (occurrence: US)
  Receive Date: 20231109
  Receipt Date: 20231109
  Transmission Date: 20240110
  Serious: Yes (Hospitalization)
  Sender: FDA-Public Use
  Company Number: US-UCBSA-2023049429

PATIENT
  Sex: Female
  Weight: 62.141 kg

DRUGS (1)
  1. CIMZIA [Suspect]
     Active Substance: CERTOLIZUMAB PEGOL
     Indication: Psoriatic arthropathy
     Dosage: 400 MILLIGRAM (2 SYRINGE), EV 4 WEEKS
     Route: 058
     Dates: start: 202308

REACTIONS (5)
  - Nervous system disorder [Unknown]
  - Fatigue [Unknown]
  - Stomatitis [Unknown]
  - Oropharyngeal pain [Unknown]
  - Oral herpes [Unknown]

NARRATIVE: CASE EVENT DATE: 20230101
